FAERS Safety Report 5925336-4 (Version None)
Quarter: 2008Q4

REPORT INFORMATION
  Report Type: 
  Country: None (occurrence: None)
  Receive Date: 20081020
  Receipt Date: 20081020
  Transmission Date: 20090506
  Serious: Yes (Life-Threatening, Hospitalization)
  Sender: FDA-Public Use
  Company Number: None

PATIENT
  Sex: Female
  Weight: 58 kg

DRUGS (1)
  1. OSMOPREP [Suspect]
     Indication: COLONOSCOPY
     Dosage: 32 TABLETS DIVIDED INTO 2 PREP TIMES PO
     Route: 048
     Dates: start: 20081007, end: 20081007

REACTIONS (4)
  - ACUTE PRERENAL FAILURE [None]
  - ANOREXIA [None]
  - DIARRHOEA [None]
  - RENAL FAILURE ACUTE [None]
